FAERS Safety Report 18236226 (Version 3)
Quarter: 2020Q3

REPORT INFORMATION
  Report Type: Spontaneous
  Country: BE (occurrence: BE)
  Receive Date: 20200906
  Receipt Date: 20200921
  Transmission Date: 20201103
  Serious: Yes (Other)
  Sender: FDA-Public Use
  Company Number: BE-ROCHE-2658145

PATIENT
  Sex: Male
  Weight: 70 kg

DRUGS (4)
  1. VALCYTE [Suspect]
     Active Substance: VALGANCICLOVIR HYDROCHLORIDE
     Indication: CYTOMEGALOVIRUS INFECTION REACTIVATION
     Route: 065
     Dates: start: 20200807, end: 20200821
  2. VALCYTE [Suspect]
     Active Substance: VALGANCICLOVIR HYDROCHLORIDE
     Route: 065
     Dates: start: 20200824
  3. CYMEVENE [Suspect]
     Active Substance: GANCICLOVIR
     Indication: CYTOMEGALOVIRUS INFECTION REACTIVATION
     Route: 042
     Dates: start: 20200724, end: 20200806
  4. CYMEVENE [Suspect]
     Active Substance: GANCICLOVIR
     Route: 042
     Dates: start: 20200724

REACTIONS (3)
  - Drug ineffective [Unknown]
  - Cytomegalovirus infection reactivation [Unknown]
  - Viral load increased [Not Recovered/Not Resolved]
